FAERS Safety Report 4440221-5 (Version None)
Quarter: 2004Q3

REPORT INFORMATION
  Report Type: 
  Country: None (occurrence: None)
  Receive Date: 20040903
  Receipt Date: 20040825
  Transmission Date: 20050211
  Serious: Yes (Other)
  Sender: FDA-Public Use
  Company Number: KR-BRISTOL-MYERS SQUIBB COMPANY-12686812

PATIENT
  Age: 72 Year
  Sex: Female

DRUGS (4)
  1. PRAVASTATIN SODIUM [Suspect]
     Indication: HYPERLIPIDAEMIA
     Route: 048
     Dates: start: 20040213, end: 20040525
  2. SYNTHROID [Concomitant]
  3. ASTRIX [Concomitant]
  4. AROMIN [Concomitant]
     Dosage: DOSAGE FORM = TABLET
     Dates: start: 20011121

REACTIONS (3)
  - BLISTER [None]
  - PRURITUS GENERALISED [None]
  - RASH [None]
